FAERS Safety Report 24402689 (Version 3)
Quarter: 2025Q4

REPORT INFORMATION
  Report Type: Spontaneous
  Country: CA (occurrence: CA)
  Receive Date: 20241007
  Receipt Date: 20251212
  Transmission Date: 20260117
  Serious: Yes (Other)
  Sender: BRISTOL-MYERS SQUIBB COMPANY
  Company Number: CA-BRISTOL-MYERS SQUIBB COMPANY-2024-154659

PATIENT
  Age: 14 Year
  Sex: Female

DRUGS (7)
  1. IPILIMUMAB [Suspect]
     Active Substance: IPILIMUMAB
     Indication: Epithelioid mesothelioma
     Dosage: 50MG/10ML AND 200MG/40 ML SINGLE USE VIALS?SOLUTION INTRAVENOUS
  2. NIVOLUMAB [Suspect]
     Active Substance: NIVOLUMAB
     Indication: Epithelioid mesothelioma
     Dosage: SOLUTION INTRAVENOUS
     Route: 042
  3. CISPLATIN [Concomitant]
     Active Substance: CISPLATIN
     Indication: Epithelioid mesothelioma
     Route: 042
  4. NAPROXEN [Concomitant]
     Active Substance: NAPROXEN
     Indication: Arthritis
  5. NAPROXEN [Concomitant]
     Active Substance: NAPROXEN
  6. PEMETREXED DISODIUM HEMIPENTAHYDRATE [Concomitant]
     Active Substance: PEMETREXED DISODIUM HEMIPENTAHYDRATE
     Indication: Epithelioid mesothelioma
     Route: 042
  7. PREDNISOLONE [Concomitant]
     Active Substance: PREDNISOLONE
     Indication: Arthritis
     Route: 048

REACTIONS (6)
  - Anaphylactic reaction [Recovering/Resolving]
  - Arthritis [Recovering/Resolving]
  - Gastrointestinal disorder [Recovering/Resolving]
  - Antinuclear antibody [Unknown]
  - Rheumatoid factor [Unknown]
  - Drug ineffective [Unknown]
